FAERS Safety Report 7458201-4 (Version None)
Quarter: 2011Q1

REPORT INFORMATION
  Report Type: 
  Country: None (occurrence: None)
  Receive Date: 20110302
  Receipt Date: 20101221
  Transmission Date: 20110831
  Serious: Yes (Hospitalization, Other)
  Sender: FDA-Public Use
  Company Number: 163-21880-08021494

PATIENT
  Age: 88 Year
  Sex: Male

DRUGS (17)
  1. NITRO PATCH (GLYCERYL TRINITRATE) (POULTICE OR PATCH) [Concomitant]
  2. ISOSORBIDE (ISOSORBIDE) [Concomitant]
  3. ERYTHROPOIETIN (ERYTHROPOIETIN) [Concomitant]
  4. IRON (IRON) [Concomitant]
  5. CRESTOR [Concomitant]
  6. NORVASC [Concomitant]
  7. PLAVIX [Concomitant]
  8. METOPROLOL TARTRATE [Concomitant]
  9. DOXYCYCLINE [Concomitant]
  10. COLCHICINE [Concomitant]
  11. LAXATIVES (LAXATIVES) [Concomitant]
  12. ACIPHEX [Concomitant]
  13. ASPIRIN [Concomitant]
  14. ALLOPURINOL [Concomitant]
  15. REVLIMID [Suspect]
     Indication: MYELODYSPLASTIC SYNDROME
     Dosage: 10 MG, 2X/WEEK, PO 10 MG, TUESDAY AND FRIDAY, PO 5 MG, 3X/WEEK, PO
     Route: 048
     Dates: start: 20080119, end: 20080101
  16. REVLIMID [Suspect]
     Indication: MYELODYSPLASTIC SYNDROME
     Dosage: 10 MG, 2X/WEEK, PO 10 MG, TUESDAY AND FRIDAY, PO 5 MG, 3X/WEEK, PO
     Route: 048
     Dates: start: 20080219, end: 20080408
  17. LORAZEPAM [Concomitant]

REACTIONS (12)
  - MALAISE [None]
  - DYSPEPSIA [None]
  - CONSTIPATION [None]
  - ANAEMIA [None]
  - BLOOD PRESSURE INCREASED [None]
  - DIARRHOEA [None]
  - MACULAR DEGENERATION [None]
  - FEELING ABNORMAL [None]
  - DECREASED APPETITE [None]
  - NAUSEA [None]
  - EYE PAIN [None]
  - ASTHENIA [None]
